FAERS Safety Report 9694046 (Version 2)
Quarter: 2013Q4

REPORT INFORMATION
  Report Type: Spontaneous
  Country: US (occurrence: US)
  Receive Date: 20131118
  Receipt Date: 20131118
  Transmission Date: 20140711
  Serious: Yes (Other)
  Sender: FDA-Public Use
  Company Number: US-PFIZER INC-2013226500

PATIENT
  Age: 61 Year
  Sex: Female
  Weight: 56.69 kg

DRUGS (9)
  1. GELFOAM [Suspect]
     Indication: FACIAL NERVE DISORDER
     Dosage: UNK
     Route: 001
     Dates: start: 20130307
  2. GELFOAM [Suspect]
     Indication: EAR OPERATION
  3. GELFOAM [Suspect]
     Indication: TYMPANOPLASTY
  4. NEOMYCIN SULFATE [Suspect]
     Dosage: UNK
     Dates: start: 2013
  5. PREDNISONE [Interacting]
     Dosage: 60 MG, DAILY
     Dates: start: 20130311, end: 201303
  6. FLOXIN [Interacting]
     Indication: PROPHYLAXIS
     Dosage: UNK
     Route: 001
     Dates: start: 20130307
  7. XANAX [Concomitant]
     Dosage: UNK
  8. LEVOTHYROXINE [Concomitant]
     Indication: AUTOIMMUNE THYROIDITIS
     Dosage: 0.5MG /ALTERNATE DAYS
  9. LEVOTHYROXINE [Concomitant]
     Dosage: 0.75MG , ALTERNATE DAYS

REACTIONS (12)
  - Deafness unilateral [Unknown]
  - Device misuse [Unknown]
  - Drug interaction [Unknown]
  - Tachycardia [Recovered/Resolved]
  - Chest discomfort [Recovered/Resolved]
  - Malaise [Unknown]
  - Arthralgia [Unknown]
  - Feeling abnormal [Unknown]
  - Thought withdrawal [Unknown]
  - Panic attack [Unknown]
  - Antineutrophil cytoplasmic antibody positive [Unknown]
  - Antinuclear antibody positive [Unknown]
